FAERS Safety Report 7999655 (Version 3)
Quarter: 2012Q4

REPORT INFORMATION
  Report Type: 
  Country: GR (occurrence: GR)
  Receive Date: 20110621
  Receipt Date: 20120925
  Transmission Date: 20130627
  Serious: Yes (Other)
  Sender: FDA-Public Use
  Company Number: GR-AMGEN-GRCSP2011029832

PATIENT
  Age: 28 Year
  Sex: Female

DRUGS (2)
  1. PROLIA [Suspect]
     Indication: OSTEOPOROSIS
     Dosage: UNK
  2. PROLIA [Suspect]
     Indication: OSTEOGENESIS IMPERFECTA

REACTIONS (1)
  - Alopecia [Recovered/Resolved]
